FAERS Safety Report 21782377 (Version 1)
Quarter: 2022Q4

REPORT INFORMATION
  Report Type: Spontaneous
  Country: HR (occurrence: HR)
  Receive Date: 20221227
  Receipt Date: 20221227
  Transmission Date: 20230112
  Serious: Yes (Other)
  Sender: FDA-Public Use
  Company Number: HR-009507513-2212HRV003772

PATIENT
  Sex: Male

DRUGS (3)
  1. REMICADE [Suspect]
     Active Substance: INFLIXIMAB
     Indication: Product used for unknown indication
     Route: 041
  2. NIVOLUMAB [Suspect]
     Active Substance: NIVOLUMAB
  3. PEMBROLIZUMAB [Suspect]
     Active Substance: PEMBROLIZUMAB
     Route: 042

REACTIONS (14)
  - Radiation pneumonitis [Unknown]
  - Pneumonitis [Unknown]
  - Chlamydial infection [Unknown]
  - Pulmonary alveolar haemorrhage [Unknown]
  - Pericarditis [Unknown]
  - Pneumocystis jirovecii pneumonia [Unknown]
  - Intestinal perforation [Unknown]
  - Malignant neoplasm progression [Unknown]
  - Bronchiolitis [Unknown]
  - Pericardial effusion [Unknown]
  - Pulmonary cavitation [Unknown]
  - Influenza [Unknown]
  - Pleural effusion [Unknown]
  - COVID-19 [Unknown]

NARRATIVE: CASE EVENT DATE: 20221101
